FAERS Safety Report 10750568 (Version 1)
Quarter: 2015Q1

REPORT INFORMATION
  Report Type: Spontaneous
  Country: GB (occurrence: GB)
  Receive Date: 20150130
  Receipt Date: 20150130
  Transmission Date: 20150721
  Serious: Yes (Life-Threatening, Hospitalization, Disabling)
  Sender: FDA-Public Use
  Company Number: GB-RANBAXY-2015RR-92341

PATIENT

DRUGS (1)
  1. ATORVASTATIN [Suspect]
     Active Substance: ATORVASTATIN
     Indication: CARDIOVASCULAR EVENT PROPHYLAXIS
     Dosage: 40 MG, UNK
     Route: 048

REACTIONS (2)
  - Pancreatitis acute [Recovered/Resolved with Sequelae]
  - Respiratory disorder [Unknown]

NARRATIVE: CASE EVENT DATE: 20141228
